FAERS Safety Report 21215138 (Version 1)
Quarter: 2022Q3

REPORT INFORMATION
  Report Type: Spontaneous
  Country: US (occurrence: US)
  Receive Date: 20220816
  Receipt Date: 20220816
  Transmission Date: 20221027
  Serious: No
  Sender: FDA-Public Use
  Company Number: US-CIPLA LTD.-2021US06566

PATIENT
  Sex: Female

DRUGS (2)
  1. ALENDRONATE [Suspect]
     Active Substance: ALENDRONATE SODIUM
     Indication: Product used for unknown indication
     Dosage: UNK, 70 MG, ONCE A WEEK
     Route: 065
  2. ALENDRONATE [Suspect]
     Active Substance: ALENDRONATE SODIUM
     Dosage: UNK, 70 MG, TOOK ON SUNDAY AND MONDAY MORNINGS IN ADDITION TO FRIDAY
     Route: 065

REACTIONS (2)
  - Wrong dose [Unknown]
  - Inappropriate schedule of product administration [Unknown]
